FAERS Safety Report 5032317-4 (Version None)
Quarter: 2006Q2

REPORT INFORMATION
  Report Type: 
  Country: None (occurrence: None)
  Receive Date: 20060508
  Receipt Date: 20051013
  Transmission Date: 20061013
  Serious: Yes (Hospitalization)
  Sender: FDA-Public Use
  Company Number: USA030229373

PATIENT

DRUGS (1)
  1. PROZAC [Suspect]

REACTIONS (4)
  - ADVERSE DRUG REACTION [None]
  - CRYING [None]
  - HALLUCINATION, AUDITORY [None]
  - THINKING ABNORMAL [None]
